FAERS Safety Report 4783382-0 (Version None)
Quarter: 2005Q3

REPORT INFORMATION
  Report Type: 
  Country: None (occurrence: None)
  Receive Date: 20050929
  Receipt Date: 20050926
  Transmission Date: 20060218
  Serious: Yes (Hospitalization)
  Sender: FDA-Public Use
  Company Number: GB-ROCHE-419208

PATIENT
  Age: 79 Year
  Sex: Female

DRUGS (3)
  1. NAPROXEN [Suspect]
     Indication: OSTEOARTHRITIS
     Route: 048
     Dates: end: 20050119
  2. PARACETAMOL [Concomitant]
     Indication: DRUG USE FOR UNKNOWN INDICATION
  3. BENDROFLUAZIDE [Concomitant]
     Indication: OEDEMA
     Route: 048

REACTIONS (2)
  - DEEP VEIN THROMBOSIS [None]
  - HAEMORRHAGE [None]
